FAERS Safety Report 7242098-1 (Version None)
Quarter: 2011Q1

REPORT INFORMATION
  Report Type: 
  Country: None (occurrence: None)
  Receive Date: 20110124
  Receipt Date: 20110120
  Transmission Date: 20110831
  Serious: Yes (Death, Life-Threatening)
  Sender: FDA-Public Use
  Company Number: FR-PFIZER INC-2011013848

PATIENT
  Age: 70 Year
  Sex: Male
  Weight: 62 kg

DRUGS (1)
  1. SUNITINIB MALATE [Suspect]
     Indication: THYROID CANCER METASTATIC
     Dosage: 50 MG, 1X/DAY
     Dates: start: 20070101, end: 20110119

REACTIONS (1)
  - CARDIO-RESPIRATORY ARREST [None]
